FAERS Safety Report 18413482 (Version 1)
Quarter: 2020Q4

REPORT INFORMATION
  Report Type: Other
  Country: JP (occurrence: JP)
  Receive Date: 20201021
  Receipt Date: 20201021
  Transmission Date: 20210114
  Serious: Yes (Other)
  Sender: FDA-Public Use
  Company Number: JP-ROCHE-2698216

PATIENT
  Age: 43 Year
  Sex: Male

DRUGS (1)
  1. PEGINTERFERON ALFA-2A. [Suspect]
     Active Substance: PEGINTERFERON ALFA-2A
     Indication: CHRONIC HEPATITIS C
     Route: 065

REACTIONS (3)
  - Hepatic cirrhosis [Recovering/Resolving]
  - Hepatic function abnormal [Recovering/Resolving]
  - Ascites [Recovering/Resolving]
